FAERS Safety Report 21144324 (Version 1)
Quarter: 2022Q3

REPORT INFORMATION
  Report Type: Spontaneous
  Country: US (occurrence: None)
  Receive Date: 20220728
  Receipt Date: 20220728
  Transmission Date: 20221027
  Serious: Yes (Disabling)
  Sender: FDA-Public Use
  Company Number: None

PATIENT
  Age: 58 Year
  Sex: Female
  Weight: 95.8 kg

DRUGS (1)
  1. WARFARIN [Suspect]
     Active Substance: WARFARIN
     Indication: Deep vein thrombosis
     Dosage: OTHER FREQUENCY : SAT, SUN, AND WED;?
     Route: 048
     Dates: start: 20210218, end: 20220406

REACTIONS (3)
  - Brain stem haemorrhage [None]
  - Deep vein thrombosis [None]
  - International normalised ratio increased [None]

NARRATIVE: CASE EVENT DATE: 20220406
